FAERS Safety Report 7935021-5 (Version None)
Quarter: 2011Q4

REPORT INFORMATION
  Report Type: 
  Country: None (occurrence: None)
  Receive Date: 20111117
  Receipt Date: 20111104
  Transmission Date: 20120403
  Serious: Yes (Hospitalization, Other)
  Sender: FDA-Public Use
  Company Number: 2011MA016055

PATIENT
  Age: 60 Year
  Sex: Female
  Weight: 79.8331 kg

DRUGS (17)
  1. ATENOLOL [Concomitant]
  2. LASIX [Concomitant]
  3. CARDURA [Concomitant]
  4. ISORDIL [Concomitant]
  5. COREG [Concomitant]
  6. PLAVIX [Concomitant]
  7. DIGOXIN [Suspect]
     Dosage: 0.25 MG;QD;PO
     Route: 048
     Dates: start: 20060616, end: 20090703
  8. ALLOPURINOL [Concomitant]
  9. ASPIRIN [Concomitant]
  10. POTASSIUM ACETATE [Concomitant]
  11. QUINAPRIL [Concomitant]
  12. ESTRADIOL [Concomitant]
  13. METFORMIN HCL [Concomitant]
  14. NITROGLYCERIN [Concomitant]
  15. SIMVASTATIN [Concomitant]
  16. ALDACTONE [Concomitant]
  17. LANTUS [Concomitant]

REACTIONS (19)
  - MULTIPLE INJURIES [None]
  - ANXIETY [None]
  - PAIN [None]
  - EJECTION FRACTION DECREASED [None]
  - AORTIC VALVE SCLEROSIS [None]
  - MIGRAINE [None]
  - ARRHYTHMIA [None]
  - MITRAL VALVE INCOMPETENCE [None]
  - ECONOMIC PROBLEM [None]
  - LEFT VENTRICULAR DYSFUNCTION [None]
  - PULMONARY HYPERTENSION [None]
  - CORONARY ARTERY STENOSIS [None]
  - CORONARY ARTERY DISEASE [None]
  - STRESS [None]
  - CARDIAC DISORDER [None]
  - LEFT ATRIAL DILATATION [None]
  - UNEVALUABLE EVENT [None]
  - CONSTIPATION [None]
  - DILATATION VENTRICULAR [None]
